FAERS Safety Report 6101140-1 (Version None)
Quarter: 2009Q1

REPORT INFORMATION
  Report Type: 
  Country: None (occurrence: None)
  Receive Date: 20090304
  Receipt Date: 20090224
  Transmission Date: 20090719
  Serious: Yes (Hospitalization)
  Sender: FDA-Public Use
  Company Number: US-BAYER-200839623NA

PATIENT
  Age: 60 Year
  Sex: Male

DRUGS (8)
  1. NEXAVAR [Suspect]
     Indication: HEPATIC NEOPLASM MALIGNANT
     Dosage: TOTAL DAILY DOSE: 800 MG  UNIT DOSE: 200 MG
     Route: 048
     Dates: start: 20081119, end: 20081119
  2. LOTENSIN [Concomitant]
     Dosage: TOTAL DAILY DOSE: 10 MG
  3. LYRICA [Concomitant]
     Dosage: TOTAL DAILY DOSE: 300 MG
  4. TRAZODONE HCL [Concomitant]
     Dosage: TOTAL DAILY DOSE: 300 MG
  5. CLONIDINE [Concomitant]
     Dosage: TOTAL DAILY DOSE: 0.2 MG
  6. PREVACID [Concomitant]
     Dosage: TOTAL DAILY DOSE: 15 MG
  7. ABILIFY [Concomitant]
     Dosage: TOTAL DAILY DOSE: 2 DF  UNIT DOSE: 1 MG/ML
  8. METHADONE HCL [Concomitant]
     Dosage: TOTAL DAILY DOSE: 10 MG

REACTIONS (1)
  - CEREBRAL HAEMORRHAGE [None]
